FAERS Safety Report 8232961-7 (Version None)
Quarter: 2012Q1

REPORT INFORMATION
  Report Type: 
  Country: None (occurrence: None)
  Receive Date: 20120325
  Receipt Date: 20120314
  Transmission Date: 20120608
  Serious: Yes (Other)
  Sender: FDA-Public Use
  Company Number: GB-BRISTOL-MYERS SQUIBB COMPANY-16460958

PATIENT
  Sex: Female

DRUGS (2)
  1. LEVOTHYROXINE SODIUM [Concomitant]
     Indication: HYPOTHYROIDISM
  2. ABILIFY [Suspect]
     Dosage: INCREASED TO 10MG ON 14MAR2012

REACTIONS (6)
  - DRY MOUTH [None]
  - DYSPHAGIA [None]
  - DEPRESSED MOOD [None]
  - EMOTIONAL DISORDER [None]
  - PSYCHOTIC DISORDER [None]
  - SUICIDAL IDEATION [None]
